FAERS Safety Report 24209661 (Version 1)
Quarter: 2024Q3

REPORT INFORMATION
  Report Type: Report from Study
  Country: DE (occurrence: DE)
  Receive Date: 20240814
  Receipt Date: 20240814
  Transmission Date: 20241016
  Serious: Yes (Other)
  Sender: ROCHE
  Company Number: DE-ROCHE-3502078

PATIENT
  Age: 27 Year
  Sex: Female
  Weight: 61.0 kg

DRUGS (4)
  1. EVRYSDI [Suspect]
     Active Substance: RISDIPLAM
     Indication: Spinal muscular atrophy
     Dosage: LAST DOSE ON 16/JAN/2024, 08/JUL/2024
     Route: 048
     Dates: start: 20230119
  2. TOPIRAMATE [Concomitant]
     Active Substance: TOPIRAMATE
     Dates: start: 20200529
  3. ZOLMITRIPTAN [Concomitant]
     Active Substance: ZOLMITRIPTAN
  4. DULOXETINE [Concomitant]
     Active Substance: DULOXETINE
     Dates: start: 20221124

REACTIONS (7)
  - Viral upper respiratory tract infection [Recovered/Resolved]
  - Gastrointestinal infection [Recovered/Resolved]
  - Vomiting [Recovered/Resolved]
  - Asthenia [Recovered/Resolved]
  - Unresponsive to stimuli [Recovered/Resolved]
  - Syncope [Recovered/Resolved]
  - Migraine [Recovered/Resolved]

NARRATIVE: CASE EVENT DATE: 20230801
